FAERS Safety Report 4549355-8 (Version None)
Quarter: 2005Q1

REPORT INFORMATION
  Report Type: 
  Country: None (occurrence: None)
  Receive Date: 20050111
  Receipt Date: 20041111
  Transmission Date: 20050727
  Serious: Yes (Death, Hospitalization)
  Sender: FDA-Public Use
  Company Number: US-BRISTOL-MYERS SQUIBB COMPANY-12762530

PATIENT

DRUGS (2)
  1. COUMADIN [Suspect]
     Dosage: DURATION OF THERAPY:  ^SOME TIME^
     Route: 048
  2. AMIODARONE [Suspect]
     Indication: VENTRICULAR ARRHYTHMIA
     Dosage: ORAL DOSE ONGOING FOR ^SOME TIME^;  ONE BOLUS IV DOSE ON AN UNSPECIFIED DATE.

REACTIONS (4)
  - DEATH [None]
  - DYSPNOEA [None]
  - INTERNATIONAL NORMALISED RATIO INCREASED [None]
  - VENTRICULAR TACHYCARDIA [None]
